FAERS Safety Report 13992447 (Version 1)
Quarter: 2017Q3

REPORT INFORMATION
  Report Type: Spontaneous
  Country: US (occurrence: US)
  Receive Date: 20170920
  Receipt Date: 20170920
  Transmission Date: 20171128
  Serious: No
  Sender: FDA-Public Use
  Company Number: US-RECKITT BENCKISER HEALTHCARE INT LIMITED-RB-90034-2017

PATIENT
  Age: 72 Year
  Sex: Female

DRUGS (2)
  1. MUCINEX [Suspect]
     Active Substance: GUAIFENESIN
     Indication: CHRONIC OBSTRUCTIVE PULMONARY DISEASE
     Dosage: 600 MG, QD
     Route: 065
     Dates: start: 2015
  2. MUCINEX [Suspect]
     Active Substance: GUAIFENESIN
     Dosage: 600 MG, BID, TOOK AT EVERY 12 HOURS.
     Route: 065

REACTIONS (3)
  - Drug ineffective [Not Recovered/Not Resolved]
  - Dehydration [Unknown]
  - Incorrect drug administration duration [Unknown]
